FAERS Safety Report 26182300 (Version 1)
Quarter: 2025Q4

REPORT INFORMATION
  Report Type: Report from Study
  Country: US (occurrence: US)
  Receive Date: 20251221
  Receipt Date: 20251221
  Transmission Date: 20260119
  Serious: Yes (Other)
  Sender: ABBVIE
  Company Number: US-ABBVIE-6594813

PATIENT
  Age: 62 Year
  Sex: Male

DRUGS (2)
  1. RINVOQ [Suspect]
     Active Substance: UPADACITINIB
     Indication: Colitis ulcerative
     Dosage: FOR 8 WEEKS?FORM STRENGTH: 45 MG
     Route: 048
     Dates: start: 202306, end: 2023
  2. RINVOQ [Suspect]
     Active Substance: UPADACITINIB
     Indication: Colitis ulcerative
     Dosage: FORM STRENGTH: 30 MG
     Route: 048
     Dates: start: 2023

REACTIONS (3)
  - Dental bone graft [Unknown]
  - Graft infection [Recovered/Resolved]
  - Tooth fracture [Unknown]

NARRATIVE: CASE EVENT DATE: 20240601
